FAERS Safety Report 10084817 (Version 1)
Quarter: 2014Q2

REPORT INFORMATION
  Report Type: Spontaneous
  Country: US (occurrence: None)
  Receive Date: 20140404
  Receipt Date: 20140404
  Transmission Date: 20141212
  Serious: Yes (Other)
  Sender: FDA-Public Use
  Company Number: 1346840

PATIENT
  Age: 39 Year
  Sex: Female

DRUGS (6)
  1. PERJETA [Suspect]
     Indication: BREAST CANCER METASTATIC
     Route: 042
  2. HERCEPTIN [Suspect]
     Indication: BREAST CANCER METASTATIC
     Route: 042
  3. BENADRYL (UNITED STATES) (DIPHENHYDRAMINE HYDROCHLORIDE) [Concomitant]
  4. TYLENOL (PARACETAMOL) [Concomitant]
  5. DECADRON (DEXAMETHASONE) [Concomitant]
  6. TAXOTERE (DOCETAXEL) [Concomitant]

REACTIONS (4)
  - Chest discomfort [None]
  - Dyspnoea [None]
  - Pallor [None]
  - Oxygen saturation decreased [None]
